FAERS Safety Report 25504855 (Version 1)
Quarter: 2025Q3

REPORT INFORMATION
  Report Type: Spontaneous
  Country: US (occurrence: None)
  Receive Date: 20250701
  Receipt Date: 20250701
  Transmission Date: 20251021
  Serious: Yes (Disabling)
  Sender: FDA-CTU
  Company Number: None

PATIENT
  Age: 63 Year
  Sex: Female
  Weight: 62.1 kg

DRUGS (6)
  1. QUETIAPINE [Suspect]
     Active Substance: QUETIAPINE
     Indication: Sleep disorder
     Dosage: 1 TAQBLET AT BEDTIME ORAL
     Route: 048
     Dates: start: 20160615, end: 20241224
  2. QUETIAPINE [Suspect]
     Active Substance: QUETIAPINE
     Indication: Anxiety
  3. LOSARTAN [Concomitant]
     Active Substance: LOSARTAN
  4. VITAMIN D 5000 [Concomitant]
  5. ACETAMINOPHEN [Concomitant]
     Active Substance: ACETAMINOPHEN
  6. MENAQUINONE 6 [Concomitant]
     Active Substance: MENAQUINONE 6

REACTIONS (2)
  - Memory impairment [None]
  - Aphasia [None]

NARRATIVE: CASE EVENT DATE: 20250516
